FAERS Safety Report 14168479 (Version 1)
Quarter: 2017Q4

REPORT INFORMATION
  Report Type: Spontaneous
  Country: DK (occurrence: DK)
  Receive Date: 20171108
  Receipt Date: 20171108
  Transmission Date: 20180321
  Serious: Yes (Other)
  Sender: FDA-Public Use
  Company Number: DK-ACCORD-061020

PATIENT
  Age: 73 Year
  Sex: Female

DRUGS (4)
  1. PREDNISOLONE DAK [Concomitant]
     Indication: DECREASED APPETITE
     Dosage: 1,5 TABLET FOR 3 DAYS, 1 TABLET FOR 3 DAYS AND HALF TABLET FOR 3 DAYS. STRENGTH 25 MG.
     Route: 048
     Dates: start: 20170703, end: 20170712
  2. PANTOPRAZOLE [Concomitant]
     Active Substance: PANTOPRAZOLE
     Indication: GASTROOESOPHAGEAL REFLUX DISEASE
     Dosage: STRENGTH 40 MG.
     Route: 048
  3. IBRANCE [Suspect]
     Active Substance: PALBOCICLIB
     Indication: INVASIVE BREAST CARCINOMA
     Dosage: STRENGTH 100 MG.
     Route: 048
     Dates: start: 20170421, end: 20170714
  4. LETROZOLE ACCORD [Suspect]
     Active Substance: LETROZOLE
     Indication: INVASIVE BREAST CARCINOMA
     Dosage: STRENGTH 2.5 MG
     Route: 048
     Dates: start: 20170421, end: 20170714

REACTIONS (2)
  - Drug ineffective [Unknown]
  - Malignant neoplasm progression [Unknown]

NARRATIVE: CASE EVENT DATE: 20170714
